FAERS Safety Report 10157635 (Version 2)
Quarter: 2014Q2

REPORT INFORMATION
  Report Type: Spontaneous
  Country: JP (occurrence: JP)
  Receive Date: 20140507
  Receipt Date: 20140610
  Transmission Date: 20141212
  Serious: Yes (Hospitalization)
  Sender: FDA-Public Use
  Company Number: JP-SA-2014SA055825

PATIENT
  Age: 46 Year
  Sex: Female
  Weight: 41 kg

DRUGS (5)
  1. CLEXANE [Suspect]
     Indication: UTERINE LEIOMYOMA
     Route: 058
     Dates: start: 20140422, end: 20140424
  2. CEFAZOLIN SODIUM [Concomitant]
     Route: 041
     Dates: start: 20140421, end: 20140423
  3. LOXONIN [Concomitant]
     Route: 048
     Dates: start: 20140422, end: 20140424
  4. CYTOTEC [Concomitant]
     Route: 048
     Dates: start: 20140422, end: 20140424
  5. MUCODYNE [Concomitant]
     Route: 048
     Dates: start: 20140423, end: 20140427

REACTIONS (2)
  - Ascites [Recovered/Resolved]
  - Renal impairment [Recovered/Resolved]
